FAERS Safety Report 6907635-2 (Version None)
Quarter: 2010Q3

REPORT INFORMATION
  Report Type: 
  Country: None (occurrence: None)
  Receive Date: 20100802
  Receipt Date: 20100721
  Transmission Date: 20110219
  Serious: Yes (Death)
  Sender: FDA-Public Use
  Company Number: 010007

PATIENT
  Age: 87 Year
  Sex: Female

DRUGS (7)
  1. PLETAL [Suspect]
     Indication: ARTERIOSCLEROSIS OBLITERANS
     Dosage: 50 MG, QD, ORAL
     Route: 048
     Dates: start: 20090319, end: 20100210
  2. ASPIRIN [Concomitant]
  3. CONIEL (BENIDIPINE HYDROCHLORIDE) [Concomitant]
  4. DOXAZOSIN MESYLATE [Concomitant]
  5. TENORMIN [Concomitant]
  6. ITOROL (ALFACALCIDOL) [Concomitant]
  7. BONALON (ALENDRONATE SODIUM HYDRATE) [Concomitant]

REACTIONS (1)
  - DEATH [None]
